FAERS Safety Report 24424908 (Version 1)
Quarter: 2024Q4

REPORT INFORMATION
  Report Type: Spontaneous
  Country: FR (occurrence: FR)
  Receive Date: 20241010
  Receipt Date: 20241010
  Transmission Date: 20250114
  Serious: Yes (Other)
  Sender: SANDOZ
  Company Number: FR-002147023-NVSC2020FR031374

PATIENT
  Age: 47 Year
  Sex: Male

DRUGS (10)
  1. BELATACEPT [Suspect]
     Active Substance: BELATACEPT
     Indication: Renal transplant
     Dosage: INDUCTION TREATMENT, AT DAY 1, 5, 15, 28 POSTTP
     Route: 042
     Dates: start: 201504, end: 2015
  2. BELATACEPT [Suspect]
     Active Substance: BELATACEPT
     Indication: Immunosuppressant drug therapy
     Dosage: MAINTENANCE THERAPY
     Route: 065
     Dates: start: 2015, end: 201705
  3. THYMOGLOBULIN [Suspect]
     Active Substance: LAPINE T-LYMPHOCYTE IMMUNE GLOBULIN
     Indication: Renal transplant
     Dosage: 4 DF, INDUCTION TREATMENT
     Route: 042
     Dates: start: 201504, end: 2015
  4. THYMOGLOBULIN [Suspect]
     Active Substance: LAPINE T-LYMPHOCYTE IMMUNE GLOBULIN
     Indication: Immunosuppressant drug therapy
  5. MYCOPHENOLATE MOFETIL [Suspect]
     Active Substance: MYCOPHENOLATE MOFETIL
     Indication: Renal transplant
     Dosage: 500 MG, BID, MAINTENANCE THERAPY
     Route: 065
     Dates: start: 2015, end: 201705
  6. MYCOPHENOLATE MOFETIL [Suspect]
     Active Substance: MYCOPHENOLATE MOFETIL
     Dosage: INDUCTION TREATMENT
     Route: 065
     Dates: start: 201504, end: 2015
  7. MYCOPHENOLATE MOFETIL [Suspect]
     Active Substance: MYCOPHENOLATE MOFETIL
     Indication: Immunosuppressant drug therapy
     Dosage: UNK (AT A LOW DOSE 2 MONTHS)
     Route: 065
  8. PREDNISONE [Suspect]
     Active Substance: PREDNISONE
     Indication: Renal transplant
     Dosage: 10 MG, QD, MAINTENANCE THERAPY
     Route: 065
     Dates: start: 2015, end: 201705
  9. PREDNISONE [Suspect]
     Active Substance: PREDNISONE
     Indication: Immunosuppressant drug therapy
  10. THYMOGLOBULIN [Suspect]
     Active Substance: LAPINE T-LYMPHOCYTE IMMUNE GLOBULIN
     Indication: Immunosuppressant drug therapy
     Dosage: INDUCTION TREATMENT
     Route: 065
     Dates: start: 201505, end: 2015

REACTIONS (4)
  - Hepatitis B reactivation [Recovered/Resolved]
  - Hepatitis acute [Recovered/Resolved]
  - Epstein-Barr virus infection [Recovered/Resolved]
  - Product use in unapproved indication [Unknown]

NARRATIVE: CASE EVENT DATE: 20170501
